FAERS Safety Report 4545776-8 (Version None)
Quarter: 2005Q1

REPORT INFORMATION
  Report Type: 
  Country: None (occurrence: None)
  Receive Date: 20050104
  Receipt Date: 20050104
  Transmission Date: 20050727
  Serious: No
  Sender: FDA-Public Use
  Company Number: None

PATIENT
  Age: 35 Year
  Sex: Female

DRUGS (2)
  1. ORTHO CYCLEN-28 [Suspect]
  2. ORTHO TRI-CYCLEN [Suspect]

REACTIONS (1)
  - MEDICATION ERROR [None]
